FAERS Safety Report 10151870 (Version 1)
Quarter: 2014Q2

REPORT INFORMATION
  Report Type: Spontaneous
  Country: US (occurrence: US)
  Receive Date: 20140505
  Receipt Date: 20140505
  Transmission Date: 20141212
  Serious: No
  Sender: FDA-Public Use
  Company Number: US-009507513-1404USA013808

PATIENT
  Age: 18 Year
  Sex: Female
  Weight: 53.97 kg

DRUGS (2)
  1. NEXPLANON [Suspect]
     Dosage: UNK
     Route: 059
     Dates: start: 20140310
  2. IMPLANON [Concomitant]

REACTIONS (3)
  - Implant site reaction [Unknown]
  - Device expulsion [Unknown]
  - Device expulsion [Unknown]
